FAERS Safety Report 14420285 (Version 1)
Quarter: 2018Q1

REPORT INFORMATION
  Report Type: Spontaneous
  Country: US (occurrence: US)
  Receive Date: 20180122
  Receipt Date: 20180122
  Transmission Date: 20180509
  Serious: No
  Sender: FDA-Public Use
  Company Number: US-ROCHE-1890740

PATIENT
  Sex: Female
  Weight: 69.92 kg

DRUGS (11)
  1. RITUXAN [Suspect]
     Active Substance: RITUXIMAB
     Dosage: 2ND COURSE
     Route: 042
     Dates: start: 20160519
  2. RITUXAN [Suspect]
     Active Substance: RITUXIMAB
     Dosage: LAST CYCLE
     Route: 042
     Dates: start: 201611
  3. RITUXAN [Suspect]
     Active Substance: RITUXIMAB
     Route: 042
     Dates: start: 201606
  4. GABAPENTIN. [Concomitant]
     Active Substance: GABAPENTIN
     Indication: PAIN
     Route: 048
     Dates: start: 201407
  5. CYCLOBENZAPRINE. [Concomitant]
     Active Substance: CYCLOBENZAPRINE
     Indication: MUSCLE SPASMS
     Route: 048
     Dates: start: 201510
  6. VITAMIN D3 [Concomitant]
     Active Substance: CHOLECALCIFEROL
     Route: 048
     Dates: start: 201612
  7. RITUXAN [Suspect]
     Active Substance: RITUXIMAB
     Route: 042
     Dates: start: 201507
  8. TOPIRAMATE. [Concomitant]
     Active Substance: TOPIRAMATE
     Route: 048
     Dates: start: 201606
  9. RITUXAN [Suspect]
     Active Substance: RITUXIMAB
     Indication: MULTIPLE SCLEROSIS RELAPSE
     Dosage: FIRST JUL/2015 AND 2ND COURSE WAS 19/MAY/2016 AND JUN/2016. LAST CYCLE NOV/2016.
     Route: 042
     Dates: start: 201508
  10. VITAMIN D3 [Concomitant]
     Active Substance: CHOLECALCIFEROL
     Dosage: 50,000 UI/WEEK
     Route: 065
     Dates: start: 201612
  11. LORAZEPAM. [Concomitant]
     Active Substance: LORAZEPAM
     Indication: ANXIETY
     Dosage: PRN
     Route: 065
     Dates: start: 201606

REACTIONS (3)
  - Maternal exposure during pregnancy [Unknown]
  - Headache [Unknown]
  - Off label use [Unknown]
